FAERS Safety Report 19352400 (Version 1)
Quarter: 2021Q2

REPORT INFORMATION
  Report Type: Spontaneous
  Country: GB (occurrence: GB)
  Receive Date: 20210531
  Receipt Date: 20210531
  Transmission Date: 20210717
  Serious: Yes (Other)
  Sender: FDA-Public Use
  Company Number: GB-TORRENT-00025740

PATIENT
  Age: 47 Year
  Sex: Female

DRUGS (5)
  1. PROMETHAZINE [Concomitant]
     Active Substance: PROMETHAZINE HYDROCHLORIDE
     Indication: ILL-DEFINED DISORDER
     Dosage: UNKNOWN
  2. HALOPERIDOL. [Concomitant]
     Active Substance: HALOPERIDOL
     Indication: ILL-DEFINED DISORDER
     Dosage: UNKNOWN
  3. PROCYCLIDINE [Concomitant]
     Active Substance: PROCYCLIDINE
     Indication: ILL-DEFINED DISORDER
     Dosage: UNKNOWN
  4. ESCITALOPRAM [Suspect]
     Active Substance: ESCITALOPRAM OXALATE
     Indication: ILL-DEFINED DISORDER
     Dosage: 20 MG
     Route: 048
     Dates: start: 20210430, end: 20210517
  5. LORAZEPAM. [Concomitant]
     Active Substance: LORAZEPAM
     Indication: ILL-DEFINED DISORDER
     Dosage: UNKNOWN

REACTIONS (3)
  - Hypersensitivity [Recovered/Resolved]
  - Dyspnoea [Unknown]
  - Swollen tongue [Unknown]

NARRATIVE: CASE EVENT DATE: 20210430
